FAERS Safety Report 8849995 (Version 3)
Quarter: 2012Q4

REPORT INFORMATION
  Report Type: 
  Country: US (occurrence: US)
  Receive Date: 20121019
  Receipt Date: 20121227
  Transmission Date: 20130627
  Serious: Yes (Death, Other)
  Sender: FDA-Public Use
  Company Number: US-ROCHE-1143656

PATIENT

DRUGS (4)
  1. PEG-INTERFERON ALFA 2A [Suspect]
     Indication: HEPATITIS C
     Route: 065
  2. RIBAVIRIN [Suspect]
     Indication: HEPATITIS C
     Route: 065
  3. TELAPREVIR [Suspect]
     Indication: HEPATITIS C
     Route: 065
  4. CYCLOSPORINE [Suspect]
     Indication: PROPHYLAXIS AGAINST TRANSPLANT REJECTION
     Route: 065

REACTIONS (11)
  - Sepsis [Fatal]
  - Transplant rejection [Unknown]
  - Angina unstable [Unknown]
  - Sinusitis [Unknown]
  - Cellulitis [Unknown]
  - Pneumonia [Unknown]
  - Rash [Unknown]
  - Ascites [Unknown]
  - Trigeminal neuralgia [Unknown]
  - Pancytopenia [Unknown]
  - Anaemia [Unknown]
